FAERS Safety Report 6360041-4 (Version None)
Quarter: 2009Q3

REPORT INFORMATION
  Report Type: 
  Country: None (occurrence: None)
  Receive Date: 20090917
  Receipt Date: 20090908
  Transmission Date: 20100115
  Serious: Yes (Hospitalization)
  Sender: FDA-Public Use
  Company Number: US-BAYER-200913873BCC

PATIENT
  Age: 82 Year
  Sex: Female
  Weight: 82 kg

DRUGS (12)
  1. ASPIRIN [Suspect]
     Route: 048
     Dates: start: 20090415, end: 20090901
  2. SIMVASTATIN [Suspect]
     Route: 048
     Dates: start: 20090415
  3. DETROL LA [Concomitant]
  4. FOLIC ACID [Concomitant]
  5. VITAMIN B COMPLEX CAP [Concomitant]
  6. ENBREL [Concomitant]
  7. SILDENAFIL CITRATE [Concomitant]
     Indication: PULMONARY HYPERTENSION
     Route: 065
  8. SILDENAFIL CITRATE [Concomitant]
  9. ADVAIR HFA [Concomitant]
     Dosage: DOSE: 100/5000
  10. VALIUM [Concomitant]
  11. TYLENOL (CAPLET) [Concomitant]
  12. METHOTREXATE [Concomitant]
     Route: 065

REACTIONS (2)
  - DYSPNOEA [None]
  - FAECES DISCOLOURED [None]
